FAERS Safety Report 6311560-8 (Version None)
Quarter: 2009Q3

REPORT INFORMATION
  Report Type: 
  Country: None (occurrence: None)
  Receive Date: 20090817
  Receipt Date: 20090807
  Transmission Date: 20100115
  Serious: Yes (Hospitalization)
  Sender: FDA-Public Use
  Company Number: FR-AVENTIS-200912944FR

PATIENT
  Age: 87 Year
  Sex: Female

DRUGS (3)
  1. LASILIX                            /00032601/ [Suspect]
     Route: 048
     Dates: start: 20020101
  2. COVERSYL                           /00790701/ [Suspect]
     Route: 048
     Dates: start: 20020101
  3. NEXIUM [Suspect]
     Route: 048
     Dates: start: 20020101, end: 20090623

REACTIONS (1)
  - PANCYTOPENIA [None]
